FAERS Safety Report 17612610 (Version 2)
Quarter: 2020Q2

REPORT INFORMATION
  Report Type: Report from Study
  Country: CA (occurrence: CA)
  Receive Date: 20200401
  Receipt Date: 20200415
  Transmission Date: 20200713
  Serious: Yes (Hospitalization, Disabling)
  Sender: FDA-Public Use
  Company Number: CA-NALPROPION PHARMACEUTICALS INC.-2020-009785

PATIENT

DRUGS (6)
  1. CONTRAVE [Suspect]
     Active Substance: BUPROPION HYDROCHLORIDE\NALTREXONE HYDROCHLORIDE
     Indication: WEIGHT CONTROL
     Dosage: STRENGTH: 90/8 MG, FIRST ATTEMPT
     Route: 048
     Dates: start: 201811, end: 201902
  2. CONTRAVE [Suspect]
     Active Substance: BUPROPION HYDROCHLORIDE\NALTREXONE HYDROCHLORIDE
     Dosage: STRENGTH: 90/8 MG; TWO TABLETS IN MORNING AND ONE TABLET IN EVENING
     Route: 048
     Dates: start: 20200204, end: 20200210
  3. CONTRAVE [Suspect]
     Active Substance: BUPROPION HYDROCHLORIDE\NALTREXONE HYDROCHLORIDE
     Dosage: STRENGTH: 90/8 MG; ONE TABLET IN MORNING, SECOND ATTEMPT
     Route: 048
     Dates: start: 20200121, end: 20200127
  4. CONTRAVE [Suspect]
     Active Substance: BUPROPION HYDROCHLORIDE\NALTREXONE HYDROCHLORIDE
     Dosage: STRENGTH: 90/8 MG; ONE TABLET IN MORNING AND ONE TABLET IN EVENING
     Route: 048
     Dates: start: 20200128, end: 20200203
  5. CONTRAVE [Suspect]
     Active Substance: BUPROPION HYDROCHLORIDE\NALTREXONE HYDROCHLORIDE
     Dosage: STRENGTH: 90/8 MG; TWO TABLET IN MORNING AND TWO TABLET IN EVENING
     Route: 048
     Dates: start: 20200211, end: 20200313
  6. CONTRAVE [Suspect]
     Active Substance: BUPROPION HYDROCHLORIDE\NALTREXONE HYDROCHLORIDE
     Dosage: STRENGTH: 90/8 ONE TABLET IN MORNING, THIRD ATTEMPT
     Route: 048
     Dates: start: 20200401

REACTIONS (12)
  - Dizziness [Unknown]
  - Inability to afford medication [Unknown]
  - Insomnia [Unknown]
  - Nausea [Unknown]
  - Micturition urgency [Unknown]
  - Migraine [Unknown]
  - Fatigue [Unknown]
  - Gait inability [Unknown]
  - Diverticulitis [Unknown]
  - Blood pressure increased [Recovered/Resolved]
  - Therapy interrupted [Unknown]
  - Feeling of body temperature change [Unknown]

NARRATIVE: CASE EVENT DATE: 201902
